FAERS Safety Report 21196174 (Version 1)
Quarter: 2022Q3

REPORT INFORMATION
  Report Type: Spontaneous
  Country: US (occurrence: None)
  Receive Date: 20220810
  Receipt Date: 20220810
  Transmission Date: 20221027
  Serious: Yes (Other)
  Sender: FDA-Public Use
  Company Number: None

PATIENT
  Age: 62 Year
  Sex: Female
  Weight: 106.2 kg

DRUGS (23)
  1. PAXLOVID [Suspect]
     Active Substance: NIRMATRELVIR\RITONAVIR
     Indication: COVID-19
     Dates: start: 20220706, end: 20220711
  2. albuterol [Concomitant]
  3. ASPIRIN [Concomitant]
     Active Substance: ASPIRIN
  4. LIPITOR [Concomitant]
     Active Substance: ATORVASTATIN CALCIUM
  5. VITAMIN B COMPLEX [Concomitant]
     Active Substance: CYANOCOBALAMIN\DEXPANTHENOL\NIACINAMIDE\PYRIDOXINE HYDROCHLORIDE\RIBOFLAVIN 5^-PHOSPHATE SODIUM\THIA
  6. TESSALON [Concomitant]
     Active Substance: BENZONATATE
  7. FIORCET [Concomitant]
  8. DULOXETINE [Concomitant]
     Active Substance: DULOXETINE
  9. SYNJARDY [Concomitant]
     Active Substance: EMPAGLIFLOZIN\METFORMIN HYDROCHLORIDE
  10. NEXIUM [Concomitant]
  11. ALLEGRA [Concomitant]
     Active Substance: FEXOFENADINE HYDROCHLORIDE
  12. FLONASE [Concomitant]
     Active Substance: FLUTICASONE PROPIONATE
  13. LASIX [Concomitant]
     Active Substance: FUROSEMIDE
  14. GABAPENTIN [Concomitant]
     Active Substance: GABAPENTIN
  15. GLIMEPIRIDE [Concomitant]
     Active Substance: GLIMEPIRIDE
  16. DUONEB [Concomitant]
  17. MECLIZINE [Concomitant]
  18. MELATONIN [Concomitant]
     Active Substance: MELATONIN
  19. NAPROXEN [Concomitant]
     Active Substance: NAPROXEN
  20. ONDANSETRON [Concomitant]
     Active Substance: ONDANSETRON
  21. POTASSIUM [Concomitant]
  22. SENNA [Concomitant]
     Active Substance: SENNA LEAF\SENNOSIDES\SENNOSIDES A AND B
  23. MOTRIN [Concomitant]
     Active Substance: IBUPROFEN

REACTIONS (7)
  - Rebound effect [None]
  - COVID-19 [None]
  - Fatigue [None]
  - Pain [None]
  - Headache [None]
  - Nausea [None]
  - Vomiting [None]

NARRATIVE: CASE EVENT DATE: 20220719
